FAERS Safety Report 9133787 (Version 2)
Quarter: 2013Q1

REPORT INFORMATION
  Report Type: Spontaneous
  Country: RO (occurrence: RO)
  Receive Date: 20130303
  Receipt Date: 20130325
  Transmission Date: 20140127
  Serious: Yes (Hospitalization)
  Sender: FDA-Public Use
  Company Number: RO-TEVA-388949ISR

PATIENT
  Age: 68 Year
  Sex: Female

DRUGS (7)
  1. SIMVASTATIN [Suspect]
     Dosage: 20 MILLIGRAM DAILY;
     Route: 048
  2. FENOFIBRATE [Suspect]
     Dosage: 160 MILLIGRAM DAILY;
     Route: 048
  3. RAMIPRIL [Concomitant]
     Dosage: 5 MILLIGRAM DAILY;
     Route: 048
  4. METROPROLOL [Concomitant]
     Dosage: 50 MILLIGRAM DAILY;
  5. INDAPAMIDE [Concomitant]
     Dosage: 1.5 MILLIGRAM DAILY;
  6. ASPIRINE [Concomitant]
     Dosage: 75 MILLIGRAM DAILY;
     Route: 048
  7. ISOSORBID MONONITRAT [Concomitant]
     Dosage: 400 MILLIGRAM DAILY;

REACTIONS (3)
  - Cholestasis [Recovered/Resolved]
  - Myalgia [Recovered/Resolved]
  - Chest pain [Unknown]
